FAERS Safety Report 19285356 (Version 1)
Quarter: 2021Q2

REPORT INFORMATION
  Report Type: Spontaneous
  Country: US (occurrence: US)
  Receive Date: 20210521
  Receipt Date: 20210521
  Transmission Date: 20210717
  Serious: Yes (Life-Threatening, Hospitalization)
  Sender: FDA-Public Use
  Company Number: US-MYLANLABS-2021M1029506

PATIENT
  Age: 48 Year
  Sex: Male

DRUGS (6)
  1. CLOPIDOGREL [Suspect]
     Active Substance: CLOPIDOGREL BISULFATE
     Indication: ANTIPLATELET THERAPY
  2. ASPIRIN                            /00002701/ [Suspect]
     Active Substance: ASPIRIN
     Indication: ANTIPLATELET THERAPY
  3. HEPARIN [Suspect]
     Active Substance: HEPARIN SODIUM
     Indication: ANTIPLATELET THERAPY
  4. HEPARIN [Suspect]
     Active Substance: HEPARIN SODIUM
     Indication: ENDOCARDITIS
     Dosage: UNK
     Route: 065
  5. ASPIRIN                            /00002701/ [Suspect]
     Active Substance: ASPIRIN
     Indication: ENDOCARDITIS
     Dosage: UNK
     Route: 065
  6. CLOPIDOGREL [Suspect]
     Active Substance: CLOPIDOGREL BISULFATE
     Indication: ENDOCARDITIS
     Dosage: UNK
     Route: 065

REACTIONS (2)
  - Condition aggravated [Recovered/Resolved]
  - Aortic dissection [Recovered/Resolved]
